FAERS Safety Report 5891555-9 (Version None)
Quarter: 2008Q3

REPORT INFORMATION
  Report Type: 
  Country: None (occurrence: None)
  Receive Date: 20080922
  Receipt Date: 20080611
  Transmission Date: 20090109
  Serious: Yes (Life-Threatening, Hospitalization)
  Sender: FDA-Public Use
  Company Number: DE-WYE-H02894908

PATIENT
  Sex: Male

DRUGS (7)
  1. RAPAMUNE [Suspect]
     Indication: PROPHYLAXIS AGAINST TRANSPLANT REJECTION
     Dates: start: 20080104, end: 20080106
  2. RAPAMUNE [Suspect]
     Dates: start: 20080110
  3. CYCLOSPORINE [Suspect]
     Indication: PROPHYLAXIS AGAINST TRANSPLANT REJECTION
     Route: 048
     Dates: start: 20071101, end: 20080106
  4. RAMIPRIL [Concomitant]
  5. PANTOZOL [Concomitant]
  6. FUROSEMIDE [Concomitant]
  7. CELLCEPT [Suspect]
     Indication: PROPHYLAXIS AGAINST TRANSPLANT REJECTION
     Route: 048
     Dates: start: 20071101, end: 20080106

REACTIONS (2)
  - PULMONARY OEDEMA [None]
  - RENAL FAILURE ACUTE [None]
